FAERS Safety Report 12872792 (Version 1)
Quarter: 2016Q4

REPORT INFORMATION
  Report Type: Spontaneous
  Country: US (occurrence: US)
  Receive Date: 20161021
  Receipt Date: 20161021
  Transmission Date: 20170207
  Serious: No
  Sender: FDA-Public Use
  Company Number: US-BAYER-2016-201578

PATIENT

DRUGS (5)
  1. ALAVERT ALLERGY [Concomitant]
     Active Substance: LORATADINE
     Dosage: UNK
  2. ALLEGRA [Concomitant]
     Active Substance: FEXOFENADINE HYDROCHLORIDE
     Dosage: UNK
  3. ADVIL MIGRAINE [Concomitant]
     Active Substance: IBUPROFEN
     Indication: MIGRAINE
     Dosage: UNK
  4. CLARITIN [Suspect]
     Active Substance: LORATADINE
     Dosage: UNK
  5. BAYER GENUINE ASPIRIN [Suspect]
     Active Substance: ASPIRIN
     Dosage: UNK

REACTIONS (4)
  - Gastritis [None]
  - Nasal dryness [None]
  - Musculoskeletal stiffness [None]
  - Abdominal pain upper [None]
